FAERS Safety Report 12346449 (Version 1)
Quarter: 2016Q2

REPORT INFORMATION
  Report Type: Spontaneous
  Country: US (occurrence: US)
  Receive Date: 20160509
  Receipt Date: 20160509
  Transmission Date: 20160815
  Serious: No
  Sender: FDA-Public Use
  Company Number: PHEH2016US011328

PATIENT
  Age: 61 Year
  Sex: Male
  Weight: 68.31 kg

DRUGS (3)
  1. VOTRIENT [Suspect]
     Active Substance: PAZOPANIB HYDROCHLORIDE
     Indication: MALIGNANT CONNECTIVE TISSUE NEOPLASM
  2. VOTRIENT [Suspect]
     Active Substance: PAZOPANIB HYDROCHLORIDE
     Indication: CHRONIC LYMPHOCYTIC LEUKAEMIA
     Dosage: 200 MG, QD
     Route: 048
     Dates: start: 20160308
  3. VOTRIENT [Suspect]
     Active Substance: PAZOPANIB HYDROCHLORIDE
     Indication: SOFT TISSUE SARCOMA

REACTIONS (4)
  - Gait disturbance [Unknown]
  - Dizziness [Unknown]
  - Headache [Recovered/Resolved]
  - Head discomfort [Unknown]

NARRATIVE: CASE EVENT DATE: 20160504
